FAERS Safety Report 14392692 (Version 1)
Quarter: 2018Q1

REPORT INFORMATION
  Report Type: Spontaneous
  Country: PT (occurrence: PT)
  Receive Date: 20180116
  Receipt Date: 20180116
  Transmission Date: 20180509
  Serious: Yes (Other)
  Sender: FDA-Public Use
  Company Number: PT-ASTRAZENECA-2018SE04407

PATIENT
  Age: 66 Year
  Sex: Female

DRUGS (3)
  1. BYDUREON [Suspect]
     Active Substance: EXENATIDE
     Indication: DIABETES MELLITUS INADEQUATE CONTROL
     Dosage: 2 MG/WEEK
     Route: 058
     Dates: start: 201605
  2. INSULIN [Concomitant]
     Active Substance: INSULIN NOS
  3. ANTIDIABETICS [Concomitant]

REACTIONS (6)
  - Urticaria [Recovered/Resolved]
  - Dysphonia [Recovered/Resolved]
  - Palatal oedema [Recovered/Resolved]
  - Vomiting [Recovered/Resolved]
  - Anaphylactic reaction [Recovered/Resolved]
  - Throat tightness [Recovered/Resolved]

NARRATIVE: CASE EVENT DATE: 201703
